FAERS Safety Report 4584975-6 (Version None)
Quarter: 2005Q1

REPORT INFORMATION
  Report Type: 
  Country: None (occurrence: None)
  Receive Date: 20050217
  Receipt Date: 20041124
  Transmission Date: 20050727
  Serious: No
  Sender: FDA-Public Use
  Company Number: US-GLAXOSMITHKLINE-A0535160A

PATIENT
  Age: 22 Year
  Sex: Male

DRUGS (4)
  1. WELLBUTRIN XL [Suspect]
     Dosage: 150MG PER DAY
     Route: 048
     Dates: start: 20041101
  2. LITHIUM [Concomitant]
  3. SEROQUEL [Concomitant]
  4. PROTONIX [Concomitant]

REACTIONS (3)
  - AGITATION [None]
  - ENERGY INCREASED [None]
  - THINKING ABNORMAL [None]
